FAERS Safety Report 7347614-7 (Version None)
Quarter: 2011Q1

REPORT INFORMATION
  Report Type: 
  Country: None (occurrence: None)
  Receive Date: 20110311
  Receipt Date: 20110304
  Transmission Date: 20110831
  Serious: Yes (Hospitalization, Congenital Anomaly)
  Sender: FDA-Public Use
  Company Number: A0681926A

PATIENT
  Sex: Male
  Weight: 3.3 kg

DRUGS (5)
  1. HUMULIN N [Concomitant]
     Route: 064
  2. PRENATAL VITAMINS [Concomitant]
     Route: 064
  3. HUMULIN R [Concomitant]
     Route: 064
  4. PAXIL [Suspect]
     Indication: PANIC ATTACK
     Dosage: 30MG UNKNOWN
     Route: 064
     Dates: start: 20020201, end: 20040801
  5. PAROXETINE HYDROCHLORIDE [Suspect]
     Indication: PANIC ATTACK
     Dosage: 30MG UNKNOWN
     Route: 064
     Dates: start: 20031001, end: 20040101

REACTIONS (12)
  - VENTRICULAR SEPTAL DEFECT [None]
  - TRANSPOSITION OF THE GREAT VESSELS [None]
  - CARDIAC FAILURE CONGESTIVE [None]
  - BUNDLE BRANCH BLOCK LEFT [None]
  - TRICUSPID VALVE INCOMPETENCE [None]
  - PATENT DUCTUS ARTERIOSUS [None]
  - PULMONARY VALVE STENOSIS [None]
  - RIGHT VENTRICULAR HYPERTROPHY [None]
  - ATRIAL SEPTAL DEFECT [None]
  - AORTIC VALVE INCOMPETENCE [None]
  - CARDIAC MURMUR [None]
  - DRUG EXPOSURE DURING PREGNANCY [None]
